FAERS Safety Report 4742135-X (Version None)
Quarter: 2005Q3

REPORT INFORMATION
  Report Type: 
  Country: None (occurrence: None)
  Receive Date: 20050808
  Receipt Date: 20050614
  Transmission Date: 20060218
  Serious: Yes (Other)
  Sender: FDA-Public Use
  Company Number: 2005082123

PATIENT
  Age: 65 Year
  Sex: Male
  Weight: 58 kg

DRUGS (11)
  1. LIPITOR [Suspect]
     Indication: BLOOD CHOLESTEROL INCREASED
     Dosage: 10 MG (10 MG, 1 IN 1 D), ORAL
     Route: 048
     Dates: start: 20050420, end: 20050428
  2. SOLDACTONE                           (POTASSIUM CANRENOATE, TROMETAMOL [Suspect]
     Indication: CARDIAC FAILURE ACUTE
     Dosage: (1 IN 1 D), INTRAVENOUS
     Route: 042
     Dates: start: 20050423, end: 20050510
  3. TICLOPIDINE HCL [Suspect]
     Indication: STENT PLACEMENT
     Dosage: 200 MG (100 MG, 2 IN 1 D), ORAL
     Route: 048
     Dates: start: 20050412, end: 20050517
  4. CARBENIN           (BETAMIPRON, PANIPENEM) [Suspect]
     Indication: PROPHYLAXIS
     Dosage: 0.5 GRAM (0.5 GRAM, 1 IN 1 D), INTRAVENOUS
     Route: 042
     Dates: start: 20050414, end: 20050514
  5. ACETYLSALICYLIC ACID SRT [Suspect]
     Indication: STENT PLACEMENT
     Dosage: 100 MG (100 MG, 1 IN 1 D), ORAL
     Route: 048
     Dates: start: 20050412
  6. SIMVASTATIN [Suspect]
     Indication: ILL-DEFINED DISORDER
     Dosage: 20 MG(20 MG, 1 IN 1 D)
     Dates: start: 20050429, end: 20050509
  7. ENALAPRIL MALEATE [Concomitant]
  8. HEPARIN [Concomitant]
  9. HANP   (CARPERITIDE) [Concomitant]
  10. DIPRIVAN [Concomitant]
  11. OMEPRAZOLE [Concomitant]

REACTIONS (7)
  - AGRANULOCYTOSIS [None]
  - ASPARTATE AMINOTRANSFERASE INCREASED [None]
  - BLOOD CREATINE PHOSPHOKINASE INCREASED [None]
  - CARDIAC FAILURE ACUTE [None]
  - HEPATIC CONGESTION [None]
  - LOW DENSITY LIPOPROTEIN INCREASED [None]
  - WHITE BLOOD CELL COUNT INCREASED [None]
